FAERS Safety Report 9157220 (Version 1)
Quarter: 2013Q1

REPORT INFORMATION
  Report Type: Spontaneous
  Country: GB (occurrence: GB)
  Receive Date: 20130312
  Receipt Date: 20130312
  Transmission Date: 20140127
  Serious: Yes (Life-Threatening, Hospitalization, Other)
  Sender: FDA-Public Use
  Company Number: GB-PFIZER INC-2013081431

PATIENT
  Age: 74 Year
  Sex: Female

DRUGS (5)
  1. PREGABALIN [Suspect]
     Indication: CHRONIC FATIGUE SYNDROME
     Dosage: UNK
     Dates: end: 201301
  2. FLUOXETINE [Concomitant]
     Dosage: UNK
  3. ZOPICLONE [Concomitant]
     Dosage: UNK
  4. EZETIMIBE [Concomitant]
     Dosage: UNK
  5. ADCAL [Concomitant]
     Dosage: UNK

REACTIONS (4)
  - Grand mal convulsion [Not Recovered/Not Resolved]
  - Respiratory arrest [Unknown]
  - Cardiac arrest [Recovered/Resolved]
  - Drug withdrawal convulsions [Not Recovered/Not Resolved]
